FAERS Safety Report 4611780-4 (Version None)
Quarter: 2005Q2

REPORT INFORMATION
  Report Type: 
  Country: None (occurrence: None)
  Receive Date: 20050308
  Receipt Date: 20050118
  Transmission Date: 20051028
  Serious: Yes (Other)
  Sender: FDA-Public Use
  Company Number: 2004UW24802

PATIENT
  Age: 70 Year
  Sex: Male
  Weight: 70.306 kg

DRUGS (5)
  1. ATACAND [Suspect]
     Indication: HYPERTENSION
     Dosage: 16 MG PO
     Route: 048
  2. CRESTOR [Suspect]
  3. LIPITOR [Concomitant]
  4. PROSCAR [Concomitant]
  5. PLAVIX [Concomitant]

REACTIONS (1)
  - MUSCULAR WEAKNESS [None]
